FAERS Safety Report 4452008-8 (Version None)
Quarter: 2004Q3

REPORT INFORMATION
  Report Type: 
  Country: None (occurrence: None)
  Receive Date: 20040915
  Receipt Date: 20040915
  Transmission Date: 20050211
  Serious: Yes (Hospitalization)
  Sender: FDA-Public Use
  Company Number: None

PATIENT
  Age: 60 Year
  Sex: Female
  Weight: 80.7 kg

DRUGS (5)
  1. KETOPROFEN [Suspect]
     Indication: PAIN
     Dosage: 50 MG PO TID
     Route: 048
  2. AMITRIPTYLINE HCL [Concomitant]
  3. DIOVAN HCT [Concomitant]
  4. OXYCODONE HCL [Concomitant]
  5. ACEBUTOLOL [Concomitant]

REACTIONS (3)
  - DIZZINESS [None]
  - MELAENA [None]
  - ULCER [None]
